FAERS Safety Report 19832151 (Version 1)
Quarter: 2021Q3

REPORT INFORMATION
  Report Type: Spontaneous
  Country: BR (occurrence: BR)
  Receive Date: 20210915
  Receipt Date: 20210915
  Transmission Date: 20211014
  Serious: Yes (Other)
  Sender: FDA-Public Use
  Company Number: BR-ASTRAZENECA-2021A684768

PATIENT
  Age: 15721 Day
  Sex: Female

DRUGS (5)
  1. VACCINE COVID?19 ? COVISHIELD [Suspect]
     Active Substance: AZD-1222
     Dosage: DOSE 1?1 UNKNOWN
     Route: 030
     Dates: start: 20210521
  2. ROSUVASTATIN. [Suspect]
     Active Substance: ROSUVASTATIN
     Dosage: 5.0MG UNKNOWN
     Route: 048
  3. PURAN [Suspect]
     Active Substance: LEVOTHYROXINE SODIUM
     Dosage: 100.0MG UNKNOWN
     Route: 065
  4. RENITEC [ENALAPRILAT] [Suspect]
     Active Substance: ENALAPRILAT
     Dosage: 5.0MG UNKNOWN
     Route: 065
  5. ESOMEX [Suspect]
     Active Substance: ESOMEPRAZOLE MAGNESIUM
     Dosage: 40.0MG UNKNOWN
     Route: 048

REACTIONS (3)
  - Haematochezia [Recovered/Resolved]
  - Gastrointestinal haemorrhage [Recovered/Resolved]
  - Inguinal hernia [Unknown]

NARRATIVE: CASE EVENT DATE: 20210524
